FAERS Safety Report 6411454-3 (Version None)
Quarter: 2009Q4

REPORT INFORMATION
  Report Type: 
  Country: None (occurrence: None)
  Receive Date: 20091023
  Receipt Date: 20090922
  Transmission Date: 20100525
  Serious: No
  Sender: FDA-Public Use
  Company Number: US-BAYER-200933854NA

PATIENT
  Age: 30 Year
  Sex: Female

DRUGS (2)
  1. AVELOX [Suspect]
     Indication: SINUSITIS BACTERIAL
  2. CIPRODEX [Concomitant]

REACTIONS (1)
  - TENDON PAIN [None]
